FAERS Safety Report 20081748 (Version 1)
Quarter: 2021Q4

REPORT INFORMATION
  Report Type: Spontaneous
  Country: CN (occurrence: CN)
  Receive Date: 20211117
  Receipt Date: 20211117
  Transmission Date: 20220303
  Serious: Yes (Life-Threatening, Hospitalization)
  Sender: FDA-Public Use
  Company Number: CN-ELI_LILLY_AND_COMPANY-CN202111005092

PATIENT
  Age: 88 Year
  Sex: Male

DRUGS (2)
  1. HUMULIN 70/30 [Suspect]
     Active Substance: INSULIN HUMAN
     Indication: Type 2 diabetes mellitus
     Dosage: 20 U, BID
     Route: 058
     Dates: start: 20211013, end: 20211106
  2. ACARBOSE [Suspect]
     Active Substance: ACARBOSE
     Indication: Type 2 diabetes mellitus
     Dosage: 100 MG, BID
     Route: 048
     Dates: start: 20211013, end: 20211106

REACTIONS (3)
  - Cardiac arrest [Unknown]
  - Arrhythmia [Unknown]
  - Hypoglycaemic coma [Unknown]

NARRATIVE: CASE EVENT DATE: 20211106
